FAERS Safety Report 19326017 (Version 2)
Quarter: 2021Q2

REPORT INFORMATION
  Report Type: Spontaneous
  Country: GB (occurrence: GB)
  Receive Date: 20210528
  Receipt Date: 20210628
  Transmission Date: 20210717
  Serious: Yes (Hospitalization, Other)
  Sender: FDA-Public Use
  Company Number: GB-IBIGEN-2021.10219

PATIENT
  Age: 16 Year
  Sex: Female
  Weight: 43.2 kg

DRUGS (1)
  1. PIPERACILLIN AND TAZOBACTAM [Suspect]
     Active Substance: PIPERACILLIN SODIUM\TAZOBACTAM SODIUM
     Indication: PERITONITIS PNEUMOCOCCAL
     Dosage: 4.5 G EVERY EIGHT HOURS IV
     Route: 042

REACTIONS (11)
  - Renal impairment [Recovered/Resolved]
  - Eosinophil count increased [Recovered/Resolved]
  - Proteinuria [Recovered/Resolved]
  - Haematuria [Recovered/Resolved]
  - Rash pruritic [Recovered/Resolved]
  - Thrombocytopenia [Recovered/Resolved]
  - Rash [Recovered/Resolved]
  - Pruritus [Recovered/Resolved]
  - Alanine aminotransferase increased [Recovered/Resolved]
  - Eosinophilia [Recovered/Resolved]
  - Normochromic normocytic anaemia [Unknown]
